FAERS Safety Report 21766180 (Version 3)
Quarter: 2023Q1

REPORT INFORMATION
  Report Type: Report from Study
  Country: US (occurrence: US)
  Receive Date: 20221222
  Receipt Date: 20230121
  Transmission Date: 20230417
  Serious: Yes (Hospitalization, Other)
  Sender: FDA-Public Use
  Company Number: US-AMGEN-USACT2022214211

PATIENT
  Age: 83 Year
  Sex: Male
  Weight: 86.17 kg

DRUGS (2)
  1. SOTORASIB [Suspect]
     Active Substance: SOTORASIB
     Indication: Non-small cell lung cancer
     Dosage: 960 MILLIGRAM, QD
     Route: 048
     Dates: start: 20221019, end: 20221125
  2. AVUTOMETINIB [Suspect]
     Active Substance: AVUTOMETINIB
     Indication: Non-small cell lung cancer
     Dosage: 4 MILLIGRAM, 2 TIMES/WK
     Route: 048
     Dates: start: 20221019, end: 20221123

REACTIONS (1)
  - Cerebrovascular accident [Recovered/Resolved]

NARRATIVE: CASE EVENT DATE: 20221130
